FAERS Safety Report 9121277 (Version 1)
Quarter: 2013Q1

REPORT INFORMATION
  Report Type: Spontaneous
  Country: GB (occurrence: GB)
  Receive Date: 20130225
  Receipt Date: 20130225
  Transmission Date: 20140127
  Serious: Yes (Other)
  Sender: FDA-Public Use
  Company Number: GB-ROCHE-1193691

PATIENT
  Age: 27 Year
  Sex: Female

DRUGS (3)
  1. NAPROXEN [Suspect]
     Indication: PRODUCT USED FOR UNKNOWN INDICATION
     Route: 065
     Dates: start: 20130130
  2. KEPPRA [Concomitant]
     Route: 065
     Dates: start: 20121206, end: 20130103
  3. KEPPRA [Concomitant]
     Route: 065
     Dates: start: 20130128

REACTIONS (1)
  - Epilepsy [Recovered/Resolved]
